FAERS Safety Report 14653207 (Version 1)
Quarter: 2018Q1

REPORT INFORMATION
  Report Type: Spontaneous
  Country: CH (occurrence: CH)
  Receive Date: 20180319
  Receipt Date: 20180319
  Transmission Date: 20180509
  Serious: Yes (Disabling, Other)
  Sender: FDA-Public Use
  Company Number: CH-AMGEN-CHESP2018035034

PATIENT
  Age: 67 Year
  Sex: Female
  Weight: 56 kg

DRUGS (8)
  1. VITAMINE D [Concomitant]
     Dosage: 35 TO 70 DROPS/MONTHS DEPENDING ON SEASON
     Route: 048
  2. OMEPRAZOLE. [Concomitant]
     Active Substance: OMEPRAZOLE
     Route: 048
  3. ZESTRIL [Concomitant]
     Active Substance: LISINOPRIL
     Route: 048
  4. EVISTA [Concomitant]
     Active Substance: RALOXIFENE HYDROCHLORIDE
     Route: 048
     Dates: start: 201704, end: 201801
  5. PROLIA [Suspect]
     Active Substance: DENOSUMAB
     Dosage: UNK
     Route: 065
     Dates: start: 20170905
  6. PROLIA [Suspect]
     Active Substance: DENOSUMAB
     Indication: OSTEOPOROSIS
     Dosage: 60 MG, Q6MO
     Route: 058
     Dates: start: 2011, end: 20160811
  7. TEMESTA EXPIDET [Concomitant]
     Active Substance: LORAZEPAM
     Dosage: 1 MG, UNK
     Route: 048
  8. CALCIMAGON D3 [Concomitant]
     Active Substance: CALCIUM\CHOLECALCIFEROL
     Indication: OSTEOPOROSIS
     Dosage: 1 DF, QD
     Route: 048

REACTIONS (3)
  - Lumbar vertebral fracture [Not Recovered/Not Resolved]
  - Thoracic vertebral fracture [Not Recovered/Not Resolved]
  - Rebound effect [Recovered/Resolved]

NARRATIVE: CASE EVENT DATE: 20170818
